FAERS Safety Report 14021651 (Version 1)
Quarter: 2017Q3

REPORT INFORMATION
  Report Type: Spontaneous
  Country: US (occurrence: None)
  Receive Date: 20170928
  Receipt Date: 20170928
  Transmission Date: 20171128
  Serious: Yes (Other)
  Sender: FDA-Public Use
  Company Number: None

PATIENT
  Age: 54 Year
  Sex: Male
  Weight: 95.25 kg

DRUGS (9)
  1. MAGNESIUM [Concomitant]
     Active Substance: MAGNESIUM
  2. LEXAPRO [Suspect]
     Active Substance: ESCITALOPRAM OXALATE
     Indication: DEPRESSION
     Dosage: 15 MG AND 20 MG 1 PILL PER DAY BY MOUTH
     Route: 048
     Dates: start: 20170606
  3. CHONDROITIN [Concomitant]
     Active Substance: CHONDROITIN
  4. SIMVISTATIN [Concomitant]
     Active Substance: SIMVASTATIN
  5. SAW PALMETTO [Concomitant]
     Active Substance: HERBALS\SAW PALMETTO
  6. LEXAPRO [Suspect]
     Active Substance: ESCITALOPRAM OXALATE
     Indication: ANXIETY
     Dosage: 15 MG AND 20 MG 1 PILL PER DAY BY MOUTH
     Route: 048
     Dates: start: 20170606
  7. TRAZODONE [Concomitant]
     Active Substance: TRAZODONE HYDROCHLORIDE
  8. FISH OIL [Concomitant]
     Active Substance: FISH OIL
  9. E [Concomitant]

REACTIONS (3)
  - Dizziness postural [None]
  - Presyncope [None]
  - Hypotension [None]

NARRATIVE: CASE EVENT DATE: 20170606
